FAERS Safety Report 4549269-3 (Version None)
Quarter: 2004Q4

REPORT INFORMATION
  Report Type: 
  Country: None (occurrence: None)
  Receive Date: 20041230
  Receipt Date: 20040601
  Transmission Date: 20050328
  Serious: Yes (Other)
  Sender: FDA-Public Use
  Company Number: 04-06-0793

PATIENT
  Age: 22 Year
  Sex: Female
  Weight: 54.4316 kg

DRUGS (15)
  1. CLOZAPINE [Suspect]
     Indication: SCHIZOAFFECTIVE DISORDER
     Dosage: 125MG QHS ORAL
     Route: 048
     Dates: start: 20030401, end: 20040501
  2. PROMETHAZINE TABLETS [Concomitant]
  3. LAMICTAL [Concomitant]
  4. DILANTIN [Concomitant]
  5. DOCUSATE SODIUM CAPSULES [Concomitant]
  6. SENNA S [Concomitant]
  7. DILANTIN CHEWABLE TABLETS [Concomitant]
  8. SEROQUEL [Concomitant]
  9. PHENERGAN [Concomitant]
  10. ABILIFY TABLETS [Concomitant]
  11. ZOLOFT [Concomitant]
  12. HYDROXYZINE [Concomitant]
  13. TIZANIDINE HYDROCHLORIDE [Concomitant]
  14. IBUPROFEN TABLETS [Concomitant]
  15. VISTARIL [Concomitant]

REACTIONS (1)
  - NEUTROPENIA [None]
